FAERS Safety Report 12955618 (Version 1)
Quarter: 2016Q4

REPORT INFORMATION
  Report Type: Spontaneous
  Country: GB (occurrence: GB)
  Receive Date: 20161118
  Receipt Date: 20161118
  Transmission Date: 20170207
  Serious: Yes (Congenital Anomaly)
  Sender: FDA-Public Use
  Company Number: GB-MYLANLABS-2016M1049216

PATIENT

DRUGS (1)
  1. QUETIAPINE. [Suspect]
     Active Substance: QUETIAPINE
     Dosage: UNK
     Dates: start: 20161102

REACTIONS (2)
  - Foetal exposure during pregnancy [Unknown]
  - Microphthalmos [Not Recovered/Not Resolved]

NARRATIVE: CASE EVENT DATE: 20161102
